FAERS Safety Report 11026980 (Version 2)
Quarter: 2015Q2

REPORT INFORMATION
  Report Type: Spontaneous
  Country: US (occurrence: US)
  Receive Date: 20150414
  Receipt Date: 20150525
  Transmission Date: 20150821
  Serious: Yes (Other)
  Sender: FDA-Public Use
  Company Number: US-JNJFOC-20111100460

PATIENT
  Sex: Female

DRUGS (1)
  1. ORTHO CYCLEN [Suspect]
     Active Substance: ETHINYL ESTRADIOL\NORGESTIMATE
     Indication: CONTRACEPTION
     Dosage: NORGESTIMATE 0.250 MG/ETHINYL ESTRADIOL 0.035 MG
     Route: 048

REACTIONS (2)
  - Exposure during pregnancy [Unknown]
  - Pregnancy on oral contraceptive [Unknown]
